FAERS Safety Report 8849900 (Version 1)
Quarter: 2012Q4

REPORT INFORMATION
  Report Type: 
  Country: US (occurrence: US)
  Receive Date: 20121019
  Receipt Date: 20121019
  Transmission Date: 20130627
  Serious: No
  Sender: FDA-Public Use
  Company Number: US-PFIZER INC-2012259343

PATIENT
  Sex: Female

DRUGS (2)
  1. EFFEXOR XR [Suspect]
     Indication: FIBROMYALGIA
     Dosage: 150 mg, daily
  2. EFFEXOR XR [Suspect]
     Dosage: 187.5 mg, daily

REACTIONS (3)
  - Off label use [Unknown]
  - Depression [Unknown]
  - Drug ineffective [Unknown]
